FAERS Safety Report 7840923-4 (Version None)
Quarter: 2011Q4

REPORT INFORMATION
  Report Type: 
  Country: None (occurrence: None)
  Receive Date: 20111021
  Receipt Date: 20111021
  Transmission Date: 20120403
  Serious: Yes (Disabling)
  Sender: FDA-Public Use
  Company Number: None

PATIENT
  Sex: Female
  Weight: 78.0187 kg

DRUGS (2)
  1. ZOCOR [Suspect]
     Indication: BLOOD CHOLESTEROL
     Dosage: 1 DAILY 80MG 1 DAY
     Dates: start: 20100801
  2. ZOCOR [Suspect]
     Indication: BLOOD CHOLESTEROL
     Dosage: 1 DAILY 80MG 1 DAY
     Dates: start: 20101001

REACTIONS (1)
  - MYALGIA [None]
